FAERS Safety Report 16095410 (Version 1)
Quarter: 2019Q1

REPORT INFORMATION
  Report Type: Spontaneous
  Country: US (occurrence: US)
  Receive Date: 20190320
  Receipt Date: 20190320
  Transmission Date: 20190418
  Serious: Yes (Other)
  Sender: FDA-Public Use
  Company Number: US-PFIZER INC-2019109032

PATIENT
  Age: 70 Year
  Sex: Female

DRUGS (3)
  1. SULFASALAZINE. [Suspect]
     Active Substance: SULFASALAZINE
     Dosage: 500 MG, [1 TABLET BY MOUTH 5-7 TIMES A DAY]
     Route: 048
  2. SULFASALAZINE. [Suspect]
     Active Substance: SULFASALAZINE
     Indication: COLITIS ULCERATIVE
     Dosage: 3500 MG, DAILY [7 TABLETS PER DAY]
     Route: 048
  3. SULFASALAZINE. [Suspect]
     Active Substance: SULFASALAZINE
     Dosage: 3000 MG, DAILY [2 TAB AT A TIME TWICE DURING DAY THEN 1 TAB INDIVIDUALLY TWICE DURING DAY]
     Route: 048

REACTIONS (3)
  - Secretion discharge [Unknown]
  - Thrombosis [Recovering/Resolving]
  - Condition aggravated [Not Recovered/Not Resolved]

NARRATIVE: CASE EVENT DATE: 201902
